FAERS Safety Report 9284790 (Version 2)
Quarter: 2013Q2

REPORT INFORMATION
  Report Type: Spontaneous
  Country: DE (occurrence: DE)
  Receive Date: 20130513
  Receipt Date: 20130530
  Transmission Date: 20140414
  Serious: No
  Sender: FDA-Public Use
  Company Number: DE-ROCHE-1223647

PATIENT
  Age: 53 Year
  Sex: Female

DRUGS (5)
  1. XOLAIR [Suspect]
     Indication: ASTHMA
     Dosage: 150/300 MG ALTERNATING
     Route: 058
     Dates: start: 200606
  2. XOLAIR [Suspect]
     Route: 058
  3. XOLAIR [Suspect]
     Dosage: 150/300 MG ALTERNATING
     Route: 058
  4. SYMBICORT [Concomitant]
  5. SALBUTAMOL [Concomitant]

REACTIONS (1)
  - Herpes zoster [Recovered/Resolved]
